FAERS Safety Report 4346339-X (Version None)
Quarter: 2004Q2

REPORT INFORMATION
  Report Type: 
  Country: None (occurrence: None)
  Receive Date: 20040423
  Receipt Date: 20040423
  Transmission Date: 20050107
  Serious: Yes (Death)
  Sender: FDA-Public Use
  Company Number: None

PATIENT
  Age: 36 Year
  Sex: Female
  Weight: 58.9676 kg

DRUGS (2)
  1. PROZAC [Suspect]
     Indication: DEPRESSION
     Dosage: 20 MG 1 PO QD
     Route: 048
     Dates: start: 19970101, end: 19980101
  2. PROZAC [Suspect]
     Indication: DEPRESSION
     Dosage: 20 MG 1 PO QD
     Route: 048
     Dates: start: 19990401, end: 19990501

REACTIONS (2)
  - CONVULSION [None]
  - DRUG LEVEL INCREASED [None]
